FAERS Safety Report 9767774 (Version 1)
Quarter: 2013Q3

REPORT INFORMATION
  Report Type: Spontaneous
  Country: US (occurrence: None)
  Receive Date: 20130903
  Receipt Date: 20130903
  Transmission Date: 20140515
  Serious: Yes (Life-Threatening)
  Sender: FDA-Public Use
  Company Number: 113145

PATIENT
  Age: 55 Year
  Sex: Male

DRUGS (1)
  1. DIPYRIDAMOLE INJ. 10MG/2ML - BEDFORD LABS, INC. [Suspect]
     Indication: RADIOISOTOPE SCAN
     Route: 042
     Dates: start: 20090309

REACTIONS (3)
  - Dyspnoea [None]
  - Bronchospasm [None]
  - Respiratory arrest [None]
